FAERS Safety Report 21697378 (Version 3)
Quarter: 2024Q1

REPORT INFORMATION
  Report Type: Spontaneous
  Country: US (occurrence: US)
  Receive Date: 20221208
  Receipt Date: 20240217
  Transmission Date: 20240410
  Serious: No
  Sender: FDA-Public Use
  Company Number: US-ELI_LILLY_AND_COMPANY-US202207002131

PATIENT
  Age: 48 Year
  Sex: Female

DRUGS (42)
  1. MOUNJARO [Suspect]
     Active Substance: TIRZEPATIDE
     Indication: Weight control
     Dosage: 2.5 MG, UNKNOWN
     Route: 058
     Dates: start: 2023
  2. MOUNJARO [Suspect]
     Active Substance: TIRZEPATIDE
     Indication: Weight control
     Dosage: 2.5 MG, UNKNOWN
     Route: 058
     Dates: start: 2023
  3. MOUNJARO [Suspect]
     Active Substance: TIRZEPATIDE
     Indication: Weight control
     Dosage: 2.5 MG, UNKNOWN
     Route: 058
     Dates: start: 2023
  4. MOUNJARO [Suspect]
     Active Substance: TIRZEPATIDE
     Indication: Weight control
     Dosage: 2.5 MG, UNKNOWN
     Route: 058
     Dates: start: 2023
  5. MOUNJARO [Suspect]
     Active Substance: TIRZEPATIDE
     Indication: Weight control
     Dosage: 2.5 MG, UNKNOWN
     Route: 058
     Dates: start: 2023
  6. MOUNJARO [Suspect]
     Active Substance: TIRZEPATIDE
     Indication: Idiopathic intracranial hypertension
     Dosage: 2.5 MG, UNKNOWN
     Route: 058
  7. MOUNJARO [Suspect]
     Active Substance: TIRZEPATIDE
     Indication: Idiopathic intracranial hypertension
     Dosage: 2.5 MG, UNKNOWN
     Route: 058
  8. MOUNJARO [Suspect]
     Active Substance: TIRZEPATIDE
     Indication: Idiopathic intracranial hypertension
     Dosage: 2.5 MG, UNKNOWN
     Route: 058
  9. MOUNJARO [Suspect]
     Active Substance: TIRZEPATIDE
     Indication: Idiopathic intracranial hypertension
     Dosage: 2.5 MG, UNKNOWN
     Route: 058
  10. MOUNJARO [Suspect]
     Active Substance: TIRZEPATIDE
     Indication: Idiopathic intracranial hypertension
     Dosage: 2.5 MG, UNKNOWN
     Route: 058
  11. MOUNJARO [Suspect]
     Active Substance: TIRZEPATIDE
     Indication: Weight control
     Dosage: 5 MG, UNKNOWN
     Route: 058
  12. MOUNJARO [Suspect]
     Active Substance: TIRZEPATIDE
     Indication: Weight control
     Dosage: 5 MG, UNKNOWN
     Route: 058
  13. MOUNJARO [Suspect]
     Active Substance: TIRZEPATIDE
     Indication: Weight control
     Dosage: 5 MG, UNKNOWN
     Route: 058
  14. MOUNJARO [Suspect]
     Active Substance: TIRZEPATIDE
     Indication: Weight control
     Dosage: 5 MG, UNKNOWN
     Route: 058
  15. MOUNJARO [Suspect]
     Active Substance: TIRZEPATIDE
     Indication: Weight control
     Dosage: 5 MG, UNKNOWN
     Route: 058
  16. MOUNJARO [Suspect]
     Active Substance: TIRZEPATIDE
     Indication: Weight control
     Dosage: 5 MG, UNKNOWN
     Route: 058
  17. MOUNJARO [Suspect]
     Active Substance: TIRZEPATIDE
     Indication: Idiopathic intracranial hypertension
     Dosage: 5 MG, UNKNOWN
     Route: 058
  18. MOUNJARO [Suspect]
     Active Substance: TIRZEPATIDE
     Indication: Idiopathic intracranial hypertension
     Dosage: 5 MG, UNKNOWN
     Route: 058
  19. MOUNJARO [Suspect]
     Active Substance: TIRZEPATIDE
     Indication: Idiopathic intracranial hypertension
     Dosage: 5 MG, UNKNOWN
     Route: 058
  20. MOUNJARO [Suspect]
     Active Substance: TIRZEPATIDE
     Indication: Idiopathic intracranial hypertension
     Dosage: 5 MG, UNKNOWN
     Route: 058
  21. MOUNJARO [Suspect]
     Active Substance: TIRZEPATIDE
     Indication: Idiopathic intracranial hypertension
     Dosage: 5 MG, UNKNOWN
     Route: 058
  22. MOUNJARO [Suspect]
     Active Substance: TIRZEPATIDE
     Indication: Idiopathic intracranial hypertension
     Dosage: 5 MG, UNKNOWN
     Route: 058
  23. MOUNJARO [Suspect]
     Active Substance: TIRZEPATIDE
     Indication: Idiopathic intracranial hypertension
     Dosage: 7.5 MG, UNKNOWN
     Route: 058
  24. MOUNJARO [Suspect]
     Active Substance: TIRZEPATIDE
     Indication: Idiopathic intracranial hypertension
     Dosage: 7.5 MG, UNKNOWN
     Route: 058
  25. MOUNJARO [Suspect]
     Active Substance: TIRZEPATIDE
     Indication: Idiopathic intracranial hypertension
     Dosage: 7.5 MG, UNKNOWN
     Route: 058
  26. MOUNJARO [Suspect]
     Active Substance: TIRZEPATIDE
     Indication: Idiopathic intracranial hypertension
     Dosage: 7.5 MG, UNKNOWN
     Route: 058
  27. MOUNJARO [Suspect]
     Active Substance: TIRZEPATIDE
     Indication: Idiopathic intracranial hypertension
     Dosage: 7.5 MG, UNKNOWN
     Route: 058
  28. MOUNJARO [Suspect]
     Active Substance: TIRZEPATIDE
     Indication: Idiopathic intracranial hypertension
     Dosage: 10 MG, UNKNOWN
     Route: 058
  29. MOUNJARO [Suspect]
     Active Substance: TIRZEPATIDE
     Indication: Idiopathic intracranial hypertension
     Dosage: 10 MG, UNKNOWN
     Route: 058
  30. MOUNJARO [Suspect]
     Active Substance: TIRZEPATIDE
     Indication: Idiopathic intracranial hypertension
     Dosage: 10 MG, UNKNOWN
     Route: 058
  31. MOUNJARO [Suspect]
     Active Substance: TIRZEPATIDE
     Indication: Idiopathic intracranial hypertension
     Dosage: 10 MG, UNKNOWN
     Route: 058
  32. MOUNJARO [Suspect]
     Active Substance: TIRZEPATIDE
     Indication: Idiopathic intracranial hypertension
     Dosage: 10 MG, UNKNOWN
     Route: 058
  33. MOUNJARO [Suspect]
     Active Substance: TIRZEPATIDE
     Indication: Idiopathic intracranial hypertension
     Dosage: 12.5 MG, UNKNOWN
     Route: 058
  34. MOUNJARO [Suspect]
     Active Substance: TIRZEPATIDE
     Indication: Idiopathic intracranial hypertension
     Dosage: 12.5 MG, UNKNOWN
     Route: 058
  35. MOUNJARO [Suspect]
     Active Substance: TIRZEPATIDE
     Indication: Idiopathic intracranial hypertension
     Dosage: 12.5 MG, UNKNOWN
     Route: 058
  36. MOUNJARO [Suspect]
     Active Substance: TIRZEPATIDE
     Indication: Idiopathic intracranial hypertension
     Dosage: 12.5 MG, UNKNOWN
     Route: 058
  37. MOUNJARO [Suspect]
     Active Substance: TIRZEPATIDE
     Indication: Idiopathic intracranial hypertension
     Dosage: 12.5 MG, UNKNOWN
     Route: 058
  38. MOUNJARO [Suspect]
     Active Substance: TIRZEPATIDE
     Indication: Idiopathic intracranial hypertension
     Dosage: 15 MG, UNKNOWN
     Route: 058
  39. MOUNJARO [Suspect]
     Active Substance: TIRZEPATIDE
     Indication: Idiopathic intracranial hypertension
     Dosage: 15 MG, UNKNOWN
     Route: 058
  40. MOUNJARO [Suspect]
     Active Substance: TIRZEPATIDE
     Indication: Idiopathic intracranial hypertension
     Dosage: 15 MG, UNKNOWN
     Route: 058
  41. MOUNJARO [Suspect]
     Active Substance: TIRZEPATIDE
     Indication: Idiopathic intracranial hypertension
     Dosage: 15 MG, UNKNOWN
     Route: 058
  42. MOUNJARO [Suspect]
     Active Substance: TIRZEPATIDE
     Indication: Idiopathic intracranial hypertension
     Dosage: 15 MG, UNKNOWN
     Route: 058

REACTIONS (6)
  - Off label use [Unknown]
  - Incorrect dose administered [Unknown]
  - Injection site mass [Unknown]
  - Injection site pain [Recovered/Resolved]
  - Accidental overdose [Unknown]
  - Visual impairment [Unknown]

NARRATIVE: CASE EVENT DATE: 20231225
